FAERS Safety Report 26206513 (Version 1)
Quarter: 2025Q4

REPORT INFORMATION
  Report Type: Spontaneous
  Country: GB (occurrence: GB)
  Receive Date: 20251229
  Receipt Date: 20251229
  Transmission Date: 20260117
  Serious: Yes (Hospitalization, Other)
  Sender: TEVA
  Company Number: None

PATIENT
  Age: 42 Year
  Sex: Male

DRUGS (4)
  1. NAPROXEN [Suspect]
     Active Substance: NAPROXEN
     Indication: Arthralgia
     Dosage: NAPROXEN 500MG BD 3/52 THEN REDUCE TO 500MG OD (PT WAS TAKING 500MG BD AT THE?TIME OF ADMISSION)
     Route: 065
  2. NAPROXEN [Suspect]
     Active Substance: NAPROXEN
     Indication: Arthralgia
     Dosage: NAPROXEN 500MG BD 3/52 THEN REDUCE TO 500MG OD (PT WAS TAKING 500MG BD AT THE?TIME OF ADMISSION)
     Route: 065
  3. LANSOPRAZOLE [Suspect]
     Active Substance: LANSOPRAZOLE
     Indication: Arthralgia
     Dosage: 30MG OD- WAS ACUTELY TAKING 30MG BD
     Route: 065
  4. LANSOPRAZOLE [Suspect]
     Active Substance: LANSOPRAZOLE
     Indication: Arthralgia
     Dosage: 30MG OD- WAS ACUTELY TAKING 30MG BD
     Route: 065

REACTIONS (2)
  - Acute kidney injury [Recovered/Resolved]
  - Hyperkalaemia [Recovered/Resolved]
